FAERS Safety Report 5502200-6 (Version None)
Quarter: 2007Q4

REPORT INFORMATION
  Report Type: 
  Country: None (occurrence: None)
  Receive Date: 20071030
  Receipt Date: 20071015
  Transmission Date: 20080405
  Serious: Yes (Other)
  Sender: FDA-Public Use
  Company Number: BR-ASTRAZENECA-2006UW18378

PATIENT
  Age: 32 Year
  Sex: Female
  Weight: 56 kg

DRUGS (4)
  1. ZOLADEX [Suspect]
     Indication: VAGINAL HAEMORRHAGE
     Route: 058
     Dates: start: 20060620
  2. ZOLADEX [Suspect]
     Route: 058
     Dates: start: 20060927
  3. ZOLADEX [Suspect]
     Route: 058
     Dates: start: 20061212
  4. ZOLADEX [Suspect]
     Route: 058
     Dates: start: 20070801

REACTIONS (9)
  - ABDOMINAL PAIN [None]
  - HAEMATEMESIS [None]
  - HOT FLUSH [None]
  - HUNGER [None]
  - MELAENA [None]
  - NAUSEA [None]
  - URINARY TRACT INFECTION [None]
  - VAGINAL HAEMORRHAGE [None]
  - WEIGHT INCREASED [None]
